FAERS Safety Report 14967242 (Version 1)
Quarter: 2018Q2

REPORT INFORMATION
  Report Type: Spontaneous
  Country: CZ (occurrence: CZ)
  Receive Date: 20180604
  Receipt Date: 20180604
  Transmission Date: 20180711
  Serious: Yes (Death, Other)
  Sender: FDA-Public Use
  Company Number: CZ-CHEPLA-C20170696_D

PATIENT
  Age: 75 Year
  Sex: Male

DRUGS (3)
  1. IDARUBICIN [Suspect]
     Active Substance: IDARUBICIN
     Indication: ACUTE PROMYELOCYTIC LEUKAEMIA
     Dosage: REDUCED DOSE OF IDARUBICIN (25% IDA; COMPARED TO AIDA PROTOCOL) COMBINED WITH ATRA
  2. ATO (ARSENIC TRIOXIDE) [Suspect]
     Active Substance: ARSENIC TRIOXIDE
     Indication: ACUTE PROMYELOCYTIC LEUKAEMIA
     Dosage: 10-DAY ATO COURSES (10 DAYS ^ON^ AND 20 DAYS ^OFF^ THERAPY, I.E. 60 X ATO TOTAL)
  3. ATRA [Suspect]
     Active Substance: TRETINOIN
     Indication: ACUTE PROMYELOCYTIC LEUKAEMIA
     Dosage: 45 MG/M^2 ATRA IN COMBINATION WITH ATO DURING CONSOLIDATION THERAPY

REACTIONS (3)
  - Electrocardiogram QT prolonged [Unknown]
  - Leukopenia [Unknown]
  - Diabetic complication [Fatal]
